FAERS Safety Report 8300742-1 (Version None)
Quarter: 2012Q2

REPORT INFORMATION
  Report Type: 
  Country: None (occurrence: None)
  Receive Date: 20120420
  Receipt Date: 20120416
  Transmission Date: 20120825
  Serious: Yes (Death)
  Sender: FDA-Public Use
  Company Number: PHHY2012IN032539

PATIENT
  Age: 71 Year
  Sex: Female

DRUGS (1)
  1. SANDOSTATIN LAR [Suspect]
     Indication: PANCREATIC CARCINOMA
     Dosage: UNK UKN, UNK
     Route: 030

REACTIONS (4)
  - FLUID RETENTION [None]
  - LIVER DISORDER [None]
  - ABDOMINAL DISTENSION [None]
  - DEATH [None]
